FAERS Safety Report 24673950 (Version 2)
Quarter: 2025Q4

REPORT INFORMATION
  Report Type: Spontaneous
  Country: US (occurrence: US)
  Receive Date: 20241128
  Receipt Date: 20251031
  Transmission Date: 20260117
  Serious: Yes (Other)
  Sender: TEVA
  Company Number: US-TEVA-VS-3267645

PATIENT
  Age: 69 Year
  Sex: Male

DRUGS (5)
  1. MYCOPHENOLATE MOFETIL [Suspect]
     Active Substance: MYCOPHENOLATE MOFETIL
     Indication: Prophylaxis against transplant rejection
     Route: 065
  2. PREDNISONE [Suspect]
     Active Substance: PREDNISONE
     Indication: Prophylaxis against transplant rejection
     Route: 065
  3. DABRAFENIB [Interacting]
     Active Substance: DABRAFENIB
     Indication: Malignant melanoma
     Route: 065
  4. TRAMETINIB [Concomitant]
     Active Substance: TRAMETINIB
     Indication: Malignant melanoma
     Route: 065
  5. TACROLIMUS [Interacting]
     Active Substance: TACROLIMUS
     Indication: Prophylaxis against transplant rejection
     Route: 065

REACTIONS (3)
  - Malignant melanoma [Unknown]
  - Transplant rejection [Recovered/Resolved]
  - Drug interaction [Unknown]
